FAERS Safety Report 10220579 (Version 2)
Quarter: 2014Q3

REPORT INFORMATION
  Report Type: Spontaneous
  Country: US (occurrence: None)
  Receive Date: 20140604
  Receipt Date: 20140807
  Transmission Date: 20150326
  Serious: Yes (Death)
  Sender: FDA-Public Use
  Company Number: 2014-US-006458

PATIENT
  Age: 70 Year
  Sex: Female

DRUGS (1)
  1. FAZACLO [Suspect]
     Active Substance: CLOZAPINE
     Route: 048
     Dates: start: 20061117

REACTIONS (2)
  - Death [None]
  - Completed suicide [None]
